FAERS Safety Report 25837499 (Version 1)
Quarter: 2025Q3

REPORT INFORMATION
  Report Type: Spontaneous
  Country: GB (occurrence: GB)
  Receive Date: 20250923
  Receipt Date: 20250923
  Transmission Date: 20251020
  Serious: Yes (Other)
  Sender: BAUSCH AND LOMB
  Company Number: None

PATIENT
  Age: 32 Year
  Sex: Male
  Weight: 65 kg

DRUGS (8)
  1. MOVIPREP [Suspect]
     Active Substance: ASCORBIC ACID\POLYETHYLENE GLYCOL 3350\POTASSIUM CHLORIDE\SODIUM ASCORBATE\SODIUM CHLORIDE\SODIUM SU
     Indication: Bowel preparation
     Route: 048
     Dates: start: 20250902
  2. LISDEXAMFETAMINE [Concomitant]
     Active Substance: LISDEXAMFETAMINE
     Indication: Attention deficit hyperactivity disorder
     Dates: start: 20250112
  3. PREGABALIN [Concomitant]
     Active Substance: PREGABALIN
     Indication: Neuralgia
     Dates: start: 2013
  4. PREGABALIN [Concomitant]
     Active Substance: PREGABALIN
     Indication: Anxiety
  5. PREGABALIN [Concomitant]
     Active Substance: PREGABALIN
     Indication: Testicular pain
  6. MELATONIN [Concomitant]
     Active Substance: MELATONIN
     Indication: Delayed sleep phase
     Dates: start: 2012
  7. POLYETHYLENE GLYCOL 3350\POTASSIUM CHLORIDE\SODIUM BICARBONATE\SODIUM [Concomitant]
     Active Substance: POLYETHYLENE GLYCOL 3350\POTASSIUM CHLORIDE\SODIUM BICARBONATE\SODIUM CHLORIDE
     Indication: Gastrointestinal motility disorder
     Dates: start: 20250618, end: 20250620
  8. DULCOLAX [Concomitant]
     Indication: Gastrointestinal motility disorder
     Dates: start: 20250615, end: 20250616

REACTIONS (19)
  - Mental impairment [Unknown]
  - Brain fog [Unknown]
  - Pain in jaw [Unknown]
  - Eructation [Unknown]
  - Testicular pain [Unknown]
  - Hypoaesthesia [Unknown]
  - Feeling cold [Unknown]
  - Chills [Unknown]
  - Dysuria [Unknown]
  - Muscle tightness [Unknown]
  - Discomfort [Unknown]
  - Bladder pain [Unknown]
  - Back pain [Unknown]
  - Dehydration [Unknown]
  - Nausea [Unknown]
  - Abdominal pain [Unknown]
  - Headache [Unknown]
  - Abdominal distension [Unknown]
  - Abdominal discomfort [Unknown]

NARRATIVE: CASE EVENT DATE: 20250902
